FAERS Safety Report 8903812 (Version 1)
Quarter: 2012Q4

REPORT INFORMATION
  Report Type: 
  Country: US (occurrence: US)
  Receive Date: 20121112
  Receipt Date: 20121112
  Transmission Date: 20130627
  Serious: No
  Sender: FDA-Public Use
  Company Number: US-PFIZER INC-2012282096

PATIENT
  Sex: Male

DRUGS (4)
  1. CHANTIX [Suspect]
     Indication: SMOKING CESSATION THERAPY
     Dosage: 0.5 mg, 1x/day
     Route: 048
     Dates: start: 20121111
  2. NEXIUM [Concomitant]
     Indication: ACID REFLUX (ESOPHAGEAL)
     Dosage: 40 mg, 1x/day
  3. GLYBURIDE [Concomitant]
     Indication: TYPE 1 DIABETES MELLITUS
     Dosage: UNK, 1x/day
  4. TRICOR [Concomitant]
     Indication: BLOOD CHOLESTEROL ABNORMAL
     Dosage: 145 mg, 1x/day

REACTIONS (2)
  - Joint swelling [Unknown]
  - Dizziness [Unknown]
